FAERS Safety Report 15106355 (Version 2)
Quarter: 2018Q3

REPORT INFORMATION
  Report Type: Spontaneous
  Country: FR (occurrence: FR)
  Receive Date: 20180704
  Receipt Date: 20180709
  Transmission Date: 20181010
  Serious: Yes (Hospitalization, Other)
  Sender: FDA-Public Use
  Company Number: FR-ASTRAZENECA-2018SE83734

PATIENT
  Age: 81 Year
  Sex: Male
  Weight: 83 kg

DRUGS (3)
  1. XYLOCAINE NAPHAZOLINE [Suspect]
     Active Substance: LIDOCAINE HYDROCHLORIDE\NAPHAZOLINE NITRATE
     Indication: INCISION SITE PAIN
     Route: 055
     Dates: start: 20180528, end: 20180531
  2. PULMICORT TURBUHALER [Suspect]
     Active Substance: BUDESONIDE
     Indication: INCISION SITE INFLAMMATION
     Route: 055
     Dates: start: 20180528
  3. SOLUPRED (PREDNISOLONE SODIUM METAZOATE) [Suspect]
     Active Substance: PREDNISOLONE SODIUM METAZOATE
     Indication: INFLAMMATION
     Route: 048
     Dates: start: 20180528, end: 20180531

REACTIONS (1)
  - Atrial fibrillation [Recovered/Resolved]

NARRATIVE: CASE EVENT DATE: 20180531
